FAERS Safety Report 15942952 (Version 1)
Quarter: 2019Q1

REPORT INFORMATION
  Report Type: Spontaneous
  Country: CH (occurrence: CH)
  Receive Date: 20190210
  Receipt Date: 20190210
  Transmission Date: 20190417
  Serious: Yes (Other)
  Sender: FDA-Public Use
  Company Number: CH-IMPAX LABORATORIES, LLC-2019-IPXL-00447

PATIENT
  Sex: Male

DRUGS (3)
  1. PREDNISONE. [Suspect]
     Active Substance: PREDNISONE
     Indication: HORMONE-REFRACTORY PROSTATE CANCER
     Dosage: 10 MILLIGRAM, QD
     Route: 065
  2. METFORMIN HYDROCHLORIDE ER [Suspect]
     Active Substance: METFORMIN HYDROCHLORIDE
     Indication: HORMONE-REFRACTORY PROSTATE CANCER
     Dosage: 1000 MILLIGRAM, BID, UNINTERRUPTED 4-WEEK CYCLES
     Route: 065
  3. ABIRATERONE ACETATE. [Suspect]
     Active Substance: ABIRATERONE ACETATE
     Indication: HORMONE-REFRACTORY PROSTATE CANCER
     Dosage: 1000 MILLIGRAM, QD
     Route: 065

REACTIONS (2)
  - Decreased appetite [Unknown]
  - Off label use [Unknown]
